FAERS Safety Report 20796915 (Version 6)
Quarter: 2025Q4

REPORT INFORMATION
  Report Type: Spontaneous
  Country: US (occurrence: US)
  Receive Date: 20220506
  Receipt Date: 20251024
  Transmission Date: 20260117
  Serious: Yes (Hospitalization, Disabling, Other)
  Sender: PFIZER
  Company Number: US-PFIZER INC-202200022212

PATIENT
  Age: 70 Year
  Sex: Female
  Weight: 63.492 kg

DRUGS (12)
  1. XELJANZ [Suspect]
     Active Substance: TOFACITINIB CITRATE
     Indication: Rheumatoid arthritis
     Dosage: 5 MG, 2X/DAY (5 MG 2 DAILY)
  2. XELJANZ [Suspect]
     Active Substance: TOFACITINIB CITRATE
     Dosage: 5 MG, 2X/DAY
  3. VITAMIN D3 [Concomitant]
     Active Substance: CHOLECALCIFEROL
     Dosage: UNK
  4. CELECOXIB [Concomitant]
     Active Substance: CELECOXIB
     Dosage: UNK
  5. CYANOCOBALAMIN [Concomitant]
     Active Substance: CYANOCOBALAMIN
     Dosage: UNK
  6. WESTCORT [Concomitant]
     Active Substance: HYDROCORTISONE VALERATE
     Dosage: UNK
  7. ADVIL [Concomitant]
     Active Substance: IBUPROFEN
     Dosage: UNK
  8. MAGNESIUM [Concomitant]
     Active Substance: MAGNESIUM
     Dosage: UNK
  9. THERAGRAN [VITAMINS NOS] [Concomitant]
     Dosage: UNK
  10. CELEBREX [Concomitant]
     Active Substance: CELECOXIB
     Dosage: UNK
  11. CITALOPRAM HYDROBROMIDE [Concomitant]
     Active Substance: CITALOPRAM HYDROBROMIDE
     Indication: Anxiety
     Dosage: UNK
     Route: 048
     Dates: start: 2021
  12. LOSARTAN POTASSIUM [Concomitant]
     Active Substance: LOSARTAN POTASSIUM
     Indication: Hypertension
     Dosage: UNK
     Route: 048
     Dates: start: 202309

REACTIONS (5)
  - Carditis [Unknown]
  - Hypertension [Recovering/Resolving]
  - Pain [Recovering/Resolving]
  - Panic attack [Unknown]
  - Dyspepsia [Unknown]

NARRATIVE: CASE EVENT DATE: 20230901
